FAERS Safety Report 11233580 (Version 1)
Quarter: 2015Q3

REPORT INFORMATION
  Report Type: Spontaneous
  Country: US (occurrence: US)
  Receive Date: 20150702
  Receipt Date: 20150702
  Transmission Date: 20151125
  Serious: No
  Sender: FDA-Public Use
  Company Number: US-ASTRAZENECA-2015SE62059

PATIENT
  Sex: Male

DRUGS (1)
  1. SEROQUEL [Suspect]
     Active Substance: QUETIAPINE FUMARATE
     Route: 048

REACTIONS (6)
  - Drug intolerance [Unknown]
  - Blood pressure decreased [Unknown]
  - Off label use [Unknown]
  - Amnesia [Unknown]
  - Palpitations [Unknown]
  - Drug effect delayed [Unknown]
